FAERS Safety Report 8315458-5 (Version None)
Quarter: 2012Q2

REPORT INFORMATION
  Report Type: 
  Country: None (occurrence: None)
  Receive Date: 20120426
  Receipt Date: 20120423
  Transmission Date: 20120825
  Serious: Yes (Hospitalization, Other)
  Sender: FDA-Public Use
  Company Number: JP-PFIZER INC-2012088722

PATIENT
  Age: 50 Year
  Sex: Male
  Weight: 59.5 kg

DRUGS (21)
  1. CANDESARTAN CILEXETIL [Concomitant]
     Indication: HYPERTENSION
     Dosage: 8 MG, 1X/DAY
     Route: 048
     Dates: end: 20120408
  2. FLUTICASONE FUROATE [Concomitant]
     Dosage: 60 MG, 2X/DAY
     Route: 048
     Dates: end: 20120408
  3. GASCON [Concomitant]
     Dosage: 40 MG, 3X/DAY
     Route: 048
     Dates: end: 20120408
  4. VITAMEDIN CAPSULE [Concomitant]
     Dosage: 50 MG, 2X/DAY
     Route: 048
     Dates: end: 20120408
  5. NESPO [Concomitant]
     Indication: RENAL FAILURE CHRONIC
     Dosage: 10 UG, WEEKLY
     Route: 042
  6. EDIROL [Concomitant]
     Dosage: 0.75 UG, 1X/DAY
     Route: 048
     Dates: end: 20120408
  7. VITAMIN B12 [Concomitant]
     Dosage: 0.5 MG, 3X/DAY
     Route: 048
     Dates: end: 20120408
  8. LIVALO [Concomitant]
     Dosage: 1 MG, 1X/DAY
     Route: 048
     Dates: end: 20120408
  9. ALLEGRA [Concomitant]
     Dosage: 60 MG, 2X/DAY
     Route: 048
     Dates: start: 20120403, end: 20120408
  10. SELBEX [Concomitant]
     Dosage: 50 MG, 3X/DAY
     Route: 048
     Dates: end: 20120408
  11. BUFFERIN [Concomitant]
     Dosage: 81 MG, 1X/DAY
     Route: 048
     Dates: end: 20120408
  12. NOVOLIN R [Concomitant]
     Indication: TYPE 1 DIABETES MELLITUS
     Dosage: 10 IU, 3X/DAY
     Route: 058
     Dates: end: 20120408
  13. KAYEXALATE [Concomitant]
     Dosage: UNK
     Route: 048
     Dates: end: 20120408
  14. DOXAZOSIN MESYLATE [Concomitant]
     Indication: HYPERTENSION
     Dosage: 1 MG, 1X/DAY
     Route: 048
     Dates: end: 20120408
  15. NOVOLIN N [Concomitant]
     Indication: TYPE 1 DIABETES MELLITUS
     Dosage: 8 IU, 1X/DAY
     Route: 058
     Dates: end: 20120408
  16. HYALEIN [Concomitant]
     Dosage: 2 GTT, 3X/DAY
     Route: 047
     Dates: end: 20120408
  17. CALCIUM CARBONATE [Concomitant]
     Dosage: 100 MG, 3X/DAY
     Route: 048
     Dates: end: 20120408
  18. GANATON [Concomitant]
     Dosage: 50 MG, 3X/DAY
     Route: 048
     Dates: end: 20120408
  19. LYRICA [Suspect]
     Dosage: 75 MG, 2X/DAY
     Route: 048
     Dates: start: 20120405, end: 20120408
  20. KINEDAK [Concomitant]
     Dosage: 50 MG, 3X/DAY
     Route: 048
     Dates: end: 20120408
  21. KALLIKREIN [Concomitant]
     Dosage: 10 IU, 3X/DAY
     Route: 048
     Dates: end: 20120408

REACTIONS (6)
  - ACCIDENTAL OVERDOSE [None]
  - DIZZINESS POSTURAL [None]
  - DYSKINESIA [None]
  - ENCEPHALOPATHY [None]
  - ALTERED STATE OF CONSCIOUSNESS [None]
  - DIZZINESS [None]
